FAERS Safety Report 16673509 (Version 10)
Quarter: 2020Q2

REPORT INFORMATION
  Report Type: Report from Study
  Country: CO (occurrence: CO)
  Receive Date: 20190806
  Receipt Date: 20200601
  Transmission Date: 20200713
  Serious: Yes (Hospitalization, Other)
  Sender: FDA-Public Use
  Company Number: CO-SA-2017SA214071

PATIENT

DRUGS (1)
  1. ALEMTUZUMAB [Suspect]
     Active Substance: ALEMTUZUMAB
     Indication: MULTIPLE SCLEROSIS
     Dosage: 12 MG,QD
     Route: 041
     Dates: start: 20170927, end: 20170929

REACTIONS (20)
  - Eosinophil count increased [Recovered/Resolved]
  - Red blood cell count decreased [Recovered/Resolved]
  - Platelet count decreased [Recovered/Resolved]
  - Aspartate aminotransferase increased [Not Recovered/Not Resolved]
  - Lymphocyte count decreased [Not Recovered/Not Resolved]
  - Alanine aminotransferase increased [Not Recovered/Not Resolved]
  - Red blood cell elliptocytes present [Recovered/Resolved]
  - Platelet morphology abnormal [Recovered/Resolved]
  - Haematocrit decreased [Recovered/Resolved]
  - Blood creatinine increased [Recovered/Resolved]
  - Crystal urine present [Recovered/Resolved]
  - Crystal urine present [Recovered/Resolved]
  - Mean cell volume decreased [Recovered/Resolved]
  - Blood thyroid stimulating hormone increased [Not Recovered/Not Resolved]
  - Fatigue [Unknown]
  - Mean cell haemoglobin decreased [Recovered/Resolved]
  - Thrombocytopenia [Recovered/Resolved]
  - Mean cell haemoglobin concentration decreased [Recovered/Resolved]
  - Haemoglobin decreased [Recovered/Resolved]
  - Conjunctivitis [Unknown]

NARRATIVE: CASE EVENT DATE: 20171030
